FAERS Safety Report 6731307-0 (Version None)
Quarter: 2010Q2

REPORT INFORMATION
  Report Type: 
  Country: None (occurrence: None)
  Receive Date: 20100518
  Receipt Date: 20100510
  Transmission Date: 20101027
  Serious: Yes (Death, Hospitalization)
  Sender: FDA-Public Use
  Company Number: ES-MERCK-1001ESP00007

PATIENT
  Age: 93 Year
  Sex: Female

DRUGS (1)
  1. INVANZ [Suspect]
     Indication: DIVERTICULITIS
     Route: 042
     Dates: start: 20091002, end: 20091009

REACTIONS (2)
  - CARDIAC FAILURE [None]
  - CONFUSIONAL STATE [None]
